FAERS Safety Report 20412336 (Version 1)
Quarter: 2022Q1

REPORT INFORMATION
  Report Type: Spontaneous
  Country: US (occurrence: US)
  Receive Date: 20220201
  Receipt Date: 20220201
  Transmission Date: 20220423
  Serious: Yes (Death, Other)
  Sender: FDA-Public Use
  Company Number: US-BAYER-2022A015939

PATIENT
  Age: 57 Year
  Sex: Male

DRUGS (3)
  1. STIVARGA [Suspect]
     Active Substance: REGORAFENIB
  2. LONSURF [Suspect]
     Active Substance: TIPIRACIL HYDROCHLORIDE\TRIFLURIDINE
     Indication: Colorectal cancer metastatic
     Dosage: 80 MG, BID
     Route: 048
     Dates: start: 20210628
  3. XELODA [Concomitant]
     Active Substance: CAPECITABINE

REACTIONS (2)
  - Death [Fatal]
  - Colorectal cancer metastatic [Unknown]

NARRATIVE: CASE EVENT DATE: 20210101
